FAERS Safety Report 16250983 (Version 1)
Quarter: 2019Q2

REPORT INFORMATION
  Report Type: Spontaneous
  Country: US (occurrence: US)
  Receive Date: 20190429
  Receipt Date: 20190429
  Transmission Date: 20190711
  Serious: No
  Sender: FDA-Public Use
  Company Number: US-PFIZER INC-2019176505

PATIENT
  Age: 61 Year
  Sex: Female
  Weight: 126.1 kg

DRUGS (4)
  1. FLEXERIL [Concomitant]
     Active Substance: CYCLOBENZAPRINE HYDROCHLORIDE
     Indication: BACK INJURY
  2. DEMEROL [Suspect]
     Active Substance: MEPERIDINE HYDROCHLORIDE
     Indication: HEADACHE
     Dosage: UNK, AS NEEDED
  3. VISTARIL [HYDROXYZINE EMBONATE] [Concomitant]
     Dosage: UNK
  4. FLEXERIL [Concomitant]
     Active Substance: CYCLOBENZAPRINE HYDROCHLORIDE
     Indication: HEADACHE
     Dosage: 10 MG, 1X/DAY
     Route: 048

REACTIONS (3)
  - Drooling [Unknown]
  - Vomiting [Unknown]
  - Malaise [Unknown]
